FAERS Safety Report 8602142-3 (Version None)
Quarter: 2012Q3

REPORT INFORMATION
  Report Type: 
  Country: None (occurrence: None)
  Receive Date: 20120817
  Receipt Date: 20120808
  Transmission Date: 20120928
  Serious: Yes (Hospitalization, Other)
  Sender: FDA-Public Use
  Company Number: US-FRI-1000037708

PATIENT
  Age: 50 Year
  Sex: Female

DRUGS (1)
  1. THYROID TAB [Suspect]
     Indication: HYPOTHYROIDISM
     Dosage: 180 MG
     Route: 048
     Dates: end: 20120301

REACTIONS (11)
  - DYSPNOEA [None]
  - GASTROOESOPHAGEAL REFLUX DISEASE [None]
  - CHOLELITHIASIS [None]
  - HYPOAESTHESIA [None]
  - CHEST PAIN [None]
  - DIZZINESS [None]
  - TREMOR [None]
  - LACRIMATION INCREASED [None]
  - BLOOD PRESSURE INCREASED [None]
  - HEART RATE INCREASED [None]
  - EXOPHTHALMOS [None]
